FAERS Safety Report 20311635 (Version 3)
Quarter: 2023Q2

REPORT INFORMATION
  Report Type: Spontaneous
  Country: US (occurrence: US)
  Receive Date: 20220108
  Receipt Date: 20230405
  Transmission Date: 20230722
  Serious: No
  Sender: FDA-Public Use
  Company Number: US-LUPIN PHARMACEUTICALS INC.-2021-26056

PATIENT

DRUGS (2)
  1. GAVILAX [Suspect]
     Active Substance: POLYETHYLENE GLYCOL 3350
     Indication: Bowel preparation
     Dosage: UNK, SHE MIXED IT WITH 2L OF PEDIALYTE AND STARTED DRINKING IT IN SEVERAL SIPS OF 4OUNCES EACH
     Route: 048
     Dates: start: 20211221, end: 20211221
  2. PEDIALYTE [Suspect]
     Active Substance: POTASSIUM CITRATE\SODIUM CITRATE\ZINC
     Indication: Bowel preparation
     Dosage: UNK, SHE MIXED IT WITH 2L OF PEDIALYTE AND STARTED DRINKING IT IN SEVERAL SIPS OF 4OUNCES EACH
     Route: 065

REACTIONS (3)
  - Product preparation issue [Unknown]
  - Product odour abnormal [Unknown]
  - Product use in unapproved indication [Unknown]

NARRATIVE: CASE EVENT DATE: 20211221
